FAERS Safety Report 16819710 (Version 3)
Quarter: 2025Q3

REPORT INFORMATION
  Report Type: Report from Study
  Country: US (occurrence: US)
  Receive Date: 20190917
  Receipt Date: 20250718
  Transmission Date: 20251021
  Serious: No
  Sender: MERCK SHARP & DOHME LLC
  Company Number: US-009507513-1909USA005721

PATIENT
  Age: 80 Year
  Sex: Female

DRUGS (1)
  1. JANUVIA [Suspect]
     Active Substance: SITAGLIPTIN PHOSPHATE
     Dosage: DOSE DESCRIPTION : ONE TABLET IN THE MORNING?DAILY DOSE : 1 DOSAGE FORM?CONCENTRATION: 100 MILLIGRAM
     Route: 048

REACTIONS (5)
  - Product dose omission issue [Unknown]
  - Product distribution issue [Unknown]
  - Product use issue [Unknown]
  - No adverse event [Unknown]
  - Inability to afford medication [Unknown]

NARRATIVE: CASE EVENT DATE: 20190909
